FAERS Safety Report 24372051 (Version 1)
Quarter: 2024Q3

REPORT INFORMATION
  Report Type: Report from Study
  Country: US (occurrence: US)
  Receive Date: 20240927
  Receipt Date: 20240927
  Transmission Date: 20241016
  Serious: Yes (Other)
  Sender: UCB
  Company Number: US-UCBSA-2024047213

PATIENT
  Sex: Female

DRUGS (1)
  1. BIMEKIZUMAB [Suspect]
     Active Substance: BIMEKIZUMAB
     Indication: Psoriasis
     Dosage: 320 MILLIGRAM, EV 4 WEEKS
     Route: 058
     Dates: start: 20240810

REACTIONS (5)
  - Eye laser surgery [Recovering/Resolving]
  - Retinal tear [Recovering/Resolving]
  - Urinary tract infection [Recovering/Resolving]
  - Injection site pain [Recovering/Resolving]
  - Photopsia [Recovering/Resolving]

NARRATIVE: CASE EVENT DATE: 20240101
